FAERS Safety Report 10452752 (Version 1)
Quarter: 2014Q3

REPORT INFORMATION
  Report Type: Spontaneous
  Country: US (occurrence: None)
  Receive Date: 20140912
  Receipt Date: 20140912
  Transmission Date: 20150326
  Serious: Yes (Other)
  Sender: FDA-Public Use
  Company Number: None

PATIENT
  Age: 32 Year
  Sex: Female

DRUGS (1)
  1. MAKENA [Suspect]
     Active Substance: HYDROXYPROGESTERONE CAPROATE
     Indication: PREMATURE LABOUR
     Dosage: 250MG/ML ONCE WEEKLY, 1ML IM ONCE WEEKLY, WEEKS 16-36
     Dates: start: 20140620, end: 20140911

REACTIONS (3)
  - Injection site reaction [None]
  - Injection site mass [None]
  - Injection site pruritus [None]

NARRATIVE: CASE EVENT DATE: 20140911
